FAERS Safety Report 13115021 (Version 1)
Quarter: 2017Q1

REPORT INFORMATION
  Report Type: Report from Study
  Country: CA (occurrence: CA)
  Receive Date: 20170113
  Receipt Date: 20170113
  Transmission Date: 20170428
  Serious: Yes (Other)
  Sender: FDA-Public Use
  Company Number: CA-GILEAD-2017-0252639

PATIENT
  Age: 44 Year
  Sex: Male

DRUGS (1)
  1. LEDIPASVIR/SOFOSBUVIR [Suspect]
     Active Substance: LEDIPASVIR\SOFOSBUVIR
     Indication: CHRONIC HEPATITIS C
     Dosage: 1 DF, UNK
     Route: 048
     Dates: start: 20161104

REACTIONS (3)
  - Drug abuser [Not Recovered/Not Resolved]
  - Contusion [Not Recovered/Not Resolved]
  - Abscess limb [Not Recovered/Not Resolved]
